FAERS Safety Report 9836951 (Version 3)
Quarter: 2014Q4

REPORT INFORMATION
  Report Type: Spontaneous
  Country: US (occurrence: None)
  Receive Date: 20131205
  Receipt Date: 20141205
  Transmission Date: 20150529
  Serious: Yes (Other)
  Sender: FDA-Public Use
  Company Number: 163-POMAL-13105409

PATIENT
  Age: 71 Year
  Sex: Female

DRUGS (2)
  1. POMALYST [Suspect]
     Active Substance: POMALIDOMIDE
     Indication: PLASMA CELL MYELOMA
     Dosage: 4MG, 1 IN 1 D)
     Route: 048
     Dates: start: 20130628, end: 2013
  2. ZOMETA [Concomitant]
     Active Substance: ZOLEDRONIC ACID

REACTIONS (8)
  - Adverse drug reaction [None]
  - Depression [None]
  - Neuropathy peripheral [None]
  - Constipation [None]
  - Headache [None]
  - Decreased appetite [None]
  - Plasma cell myeloma [None]
  - Back pain [None]

NARRATIVE: CASE EVENT DATE: 20130806
